FAERS Safety Report 5093450-4 (Version None)
Quarter: 2006Q3

REPORT INFORMATION
  Report Type: 
  Country: None (occurrence: None)
  Receive Date: 20060828
  Receipt Date: 20060818
  Transmission Date: 20061208
  Serious: Yes (Hospitalization, Other)
  Sender: FDA-Public Use
  Company Number: 2006-DE-04320GD

PATIENT
  Age: 39 Year
  Sex: Male

DRUGS (3)
  1. PREDNISONE TAB [Suspect]
     Indication: POLYARTERITIS NODOSA
     Dosage: 1 MG/KG
  2. CYCLOPHOSPHAMIDE [Suspect]
     Indication: POLYARTERITIS NODOSA
     Dosage: 0.7 G/M2 MONTHLY
  3. INTRAVENOUS IMMUNOGLOBULIN (IMMUNOGLOBULIN) [Suspect]
     Indication: POLYARTERITIS NODOSA
     Dosage: 1 G/KG FOR 2 DAYS MONTHLY, IV
     Route: 042

REACTIONS (12)
  - ANTINEUTROPHIL CYTOPLASMIC ANTIBODY [None]
  - ANTINEUTROPHIL CYTOPLASMIC ANTIBODY POSITIVE [None]
  - CONDITION AGGRAVATED [None]
  - DISEASE RECURRENCE [None]
  - DRUG INEFFECTIVE [None]
  - HAEMOGLOBIN DECREASED [None]
  - HEADACHE [None]
  - NAUSEA [None]
  - NEUROPATHY PERIPHERAL [None]
  - PACHYMENINGITIS [None]
  - POLYARTERITIS NODOSA [None]
  - VASCULITIS [None]
